FAERS Safety Report 17443516 (Version 1)
Quarter: 2020Q1

REPORT INFORMATION
  Report Type: Spontaneous
  Country: US (occurrence: US)
  Receive Date: 20200221
  Receipt Date: 20200221
  Transmission Date: 20200409
  Serious: No
  Sender: FDA-Public Use
  Company Number: US-009507513-2002USA007376

PATIENT
  Age: 75 Year
  Sex: Female

DRUGS (2)
  1. METFORMIN [Concomitant]
     Active Substance: METFORMIN HYDROCHLORIDE
  2. JANUVIA [Suspect]
     Active Substance: SITAGLIPTIN PHOSPHATE
     Indication: TYPE 2 DIABETES MELLITUS
     Dosage: 1 TABLET, ONCE A DAY (QD)
     Route: 048
     Dates: start: 201807

REACTIONS (3)
  - Blood glucose increased [Not Recovered/Not Resolved]
  - Inability to afford medication [Unknown]
  - Product dose omission [Unknown]

NARRATIVE: CASE EVENT DATE: 20200203
